FAERS Safety Report 5974859-0 (Version None)
Quarter: 2008Q4

REPORT INFORMATION
  Report Type: 
  Country: None (occurrence: None)
  Receive Date: 20081202
  Receipt Date: 20081125
  Transmission Date: 20090506
  Serious: Yes (Hospitalization)
  Sender: FDA-Public Use
  Company Number: DE-PFIZER INC-2008097551

PATIENT
  Sex: Female
  Weight: 45 kg

DRUGS (3)
  1. LYRICA [Suspect]
     Indication: SPINAL CORD DISORDER
     Route: 048
     Dates: start: 20041001
  2. AMITRIPTYLINE HCL [Concomitant]
     Route: 048
     Dates: start: 20040101
  3. DURAGESIC-100 [Concomitant]
     Route: 062
     Dates: start: 20040101

REACTIONS (3)
  - TACHYCARDIA [None]
  - TREMOR [None]
  - WITHDRAWAL SYNDROME [None]
